FAERS Safety Report 7781695-1 (Version None)
Quarter: 2011Q3

REPORT INFORMATION
  Report Type: 
  Country: None (occurrence: None)
  Receive Date: 20110927
  Receipt Date: 20110922
  Transmission Date: 20111222
  Serious: Yes (Other)
  Sender: FDA-Public Use
  Company Number: US-GLAXOSMITHKLINE-A0545688A

PATIENT
  Age: 62 Year
  Sex: Female
  Weight: 95.5 kg

DRUGS (5)
  1. LEVOXYL [Concomitant]
  2. ZOCOR [Concomitant]
  3. AVANDIA [Suspect]
     Indication: TYPE 2 DIABETES MELLITUS
     Dosage: 4MG TWICE PER DAY
     Route: 048
     Dates: start: 20020101, end: 20041122
  4. XANAX [Concomitant]
  5. HUMULIN 70/30 [Concomitant]

REACTIONS (11)
  - PULMONARY FIBROSIS [None]
  - SKIN CHAPPED [None]
  - SKIN TIGHTNESS [None]
  - FLUID RETENTION [None]
  - CARDIAC FAILURE CONGESTIVE [None]
  - HEART RATE INCREASED [None]
  - OEDEMA [None]
  - VARICOSE VEIN [None]
  - WEIGHT INCREASED [None]
  - PAIN IN EXTREMITY [None]
  - DYSPNOEA [None]
